FAERS Safety Report 8486157-4 (Version None)
Quarter: 2012Q3

REPORT INFORMATION
  Report Type: 
  Country: None (occurrence: None)
  Receive Date: 20120703
  Receipt Date: 20120628
  Transmission Date: 20120928
  Serious: Yes (Hospitalization)
  Sender: FDA-Public Use
  Company Number: US-TEVA-345789USA

PATIENT
  Sex: Female

DRUGS (1)
  1. COPAXONE [Suspect]
     Indication: MULTIPLE SCLEROSIS
     Dates: start: 20120517

REACTIONS (5)
  - GASTROINTESTINAL TRACT IRRITATION [None]
  - FATIGUE [None]
  - HICCUPS [None]
  - NAUSEA [None]
  - INFLAMMATION [None]
